FAERS Safety Report 23869737 (Version 2)
Quarter: 2024Q2

REPORT INFORMATION
  Report Type: Spontaneous
  Country: CN (occurrence: CN)
  Receive Date: 20240517
  Receipt Date: 20240528
  Transmission Date: 20240716
  Serious: Yes (Hospitalization)
  Sender: FDA-Public Use
  Company Number: CN-002147023-NVSC2024CN104775

PATIENT
  Age: 73 Year
  Sex: Male
  Weight: 86 kg

DRUGS (5)
  1. CARBAMAZEPINE [Suspect]
     Active Substance: CARBAMAZEPINE
     Indication: Trigeminal neuralgia
     Dosage: 200 MG, BID
     Route: 048
     Dates: start: 20240328, end: 20240406
  2. CARBAMAZEPINE [Suspect]
     Active Substance: CARBAMAZEPINE
     Dosage: 400 MG, BID
     Route: 048
     Dates: start: 20240407, end: 20240413
  3. CARBAMAZEPINE [Suspect]
     Active Substance: CARBAMAZEPINE
     Dosage: 200 MG
     Route: 048
     Dates: start: 20240501
  4. IBUPROFEN [Suspect]
     Active Substance: IBUPROFEN
     Indication: Headache
     Dosage: 0.3 G, BID
     Route: 048
     Dates: start: 20240331, end: 20240412
  5. LOXOPROFEN SODIUM [Suspect]
     Active Substance: LOXOPROFEN SODIUM
     Indication: Back pain
     Dosage: 60 MG, TID
     Route: 048
     Dates: start: 20240312, end: 20240403

REACTIONS (7)
  - Drug eruption [Recovering/Resolving]
  - Dry skin [Unknown]
  - Eosinophil percentage abnormal [Unknown]
  - Eosinophil count abnormal [Unknown]
  - C-reactive protein abnormal [Unknown]
  - Pruritus [Recovering/Resolving]
  - Rash [Recovering/Resolving]

NARRATIVE: CASE EVENT DATE: 20240413
